FAERS Safety Report 4666250-4 (Version None)
Quarter: 2005Q2

REPORT INFORMATION
  Report Type: 
  Country: None (occurrence: None)
  Receive Date: 20050518
  Receipt Date: 20050502
  Transmission Date: 20051028
  Serious: Yes (Hospitalization)
  Sender: FDA-Public Use
  Company Number: 214412

PATIENT
  Age: 66 Year
  Sex: Male

DRUGS (2)
  1. AVASTIN [Suspect]
     Indication: RENAL CELL CARCINOMA STAGE UNSPECIFIED
     Dosage: 10 MG/KG, Q2W
     Dates: start: 20040426
  2. INTERFERON ALFA (INTERFERON ALFA) [Suspect]
     Indication: RENAL CELL CARCINOMA STAGE UNSPECIFIED
     Dosage: 9 MU, 3/WEEK, SUBCUTANEOUS
     Route: 058
     Dates: start: 20040426

REACTIONS (17)
  - ACIDOSIS [None]
  - ASTHENIA [None]
  - AZOTAEMIA [None]
  - BLOOD POTASSIUM INCREASED [None]
  - CARDIAC VALVE DISEASE [None]
  - DIZZINESS [None]
  - DYSPNOEA EXERTIONAL [None]
  - EMPHYSEMA [None]
  - FATIGUE [None]
  - FEELING ABNORMAL [None]
  - HYPOXIA [None]
  - OXYGEN SATURATION DECREASED [None]
  - PLEURAL DISORDER [None]
  - RESPIRATORY FAILURE [None]
  - SYNCOPE [None]
  - TRICUSPID VALVE INCOMPETENCE [None]
  - VENTRICULAR HYPERTROPHY [None]
